FAERS Safety Report 25639240 (Version 1)
Quarter: 2025Q3

REPORT INFORMATION
  Report Type: Spontaneous
  Country: US (occurrence: US)
  Receive Date: 20250804
  Receipt Date: 20250804
  Transmission Date: 20251020
  Serious: No
  Sender: ROCHE
  Company Number: US-ROCHE-10000354685

PATIENT
  Sex: Female

DRUGS (6)
  1. XOLAIR [Suspect]
     Active Substance: OMALIZUMAB
     Indication: Urticaria
     Route: 058
     Dates: start: 202502
  2. XOLAIR [Suspect]
     Active Substance: OMALIZUMAB
  3. NICKEL [Concomitant]
     Active Substance: NICKEL
  4. COBALT [Concomitant]
     Active Substance: COBALT
  5. PROPOLIS WAX [Concomitant]
     Active Substance: PROPOLIS WAX
  6. NEOMYCIN [Concomitant]
     Active Substance: NEOMYCIN

REACTIONS (1)
  - Hypersensitivity [Unknown]
